FAERS Safety Report 19061577 (Version 1)
Quarter: 2021Q1

REPORT INFORMATION
  Report Type: Spontaneous
  Country: US (occurrence: US)
  Receive Date: 20210325
  Receipt Date: 20210325
  Transmission Date: 20210420
  Serious: Yes (Death)
  Sender: FDA-Public Use
  Company Number: None

PATIENT
  Sex: Male

DRUGS (2)
  1. FOLIC ACID ; PENICILLIN VK ; BENADRYL?D [Concomitant]
  2. DEFERASIROX. [Suspect]
     Active Substance: DEFERASIROX
     Indication: THALASSAEMIA BETA
     Route: 048
     Dates: start: 20200110

REACTIONS (1)
  - Death [None]
